FAERS Safety Report 4661106-5 (Version None)
Quarter: 2005Q2

REPORT INFORMATION
  Report Type: 
  Country: None (occurrence: None)
  Receive Date: 20050511
  Receipt Date: 20050425
  Transmission Date: 20051028
  Serious: Yes (Hospitalization, Other)
  Sender: FDA-Public Use
  Company Number: 2005054611

PATIENT
  Age: 79 Year
  Sex: Male
  Weight: 70 kg

DRUGS (11)
  1. NORVASC [Suspect]
     Indication: HYPERTENSION
     Dosage: 5 MG (5 MG, 1 IN 24 HR), ORAL
     Route: 048
     Dates: start: 20050324, end: 20050331
  2. ASPIRIN [Concomitant]
  3. TRICHLORMETHIAZIDE [Concomitant]
  4. NIFEDIPINE [Concomitant]
  5. TEPRENONE (TEPRENONE) [Concomitant]
  6. TAMSULOSIN HYDROCHLORIDE (TAMSULOSIN HYDROCHLORIDE) [Concomitant]
  7. GLYBURIDE [Concomitant]
  8. DIPYRIDAMOLE [Concomitant]
  9. BERAPROST SODIUM (BERAPROST SODIUM) [Concomitant]
  10. ALLOPURINOL [Concomitant]
  11. LANSOPRAZOLE [Concomitant]

REACTIONS (9)
  - ACUTE PRERENAL FAILURE [None]
  - ANOREXIA [None]
  - DEHYDRATION [None]
  - DIARRHOEA [None]
  - DIZZINESS [None]
  - NAUSEA [None]
  - RENAL IMPAIRMENT [None]
  - URINE OUTPUT DECREASED [None]
  - VOMITING [None]
